FAERS Safety Report 5564920-7 (Version None)
Quarter: 2007Q4

REPORT INFORMATION
  Report Type: 
  Country: None (occurrence: None)
  Receive Date: 20071218
  Receipt Date: 20071213
  Transmission Date: 20080405
  Serious: Yes (Other)
  Sender: FDA-Public Use
  Company Number: A0696598A

PATIENT
  Age: 20 Year
  Sex: Female

DRUGS (2)
  1. WELLBUTRIN [Suspect]
     Indication: DEPRESSION
     Route: 048
  2. AMBIEN [Suspect]
     Indication: INSOMNIA
     Dosage: 27TAB SINGLE DOSE
     Route: 048

REACTIONS (5)
  - CONDITION AGGRAVATED [None]
  - DRUG INEFFECTIVE [None]
  - INSOMNIA [None]
  - INTENTIONAL OVERDOSE [None]
  - SUICIDE ATTEMPT [None]
